FAERS Safety Report 6734073-8 (Version None)
Quarter: 2010Q2

REPORT INFORMATION
  Report Type: 
  Country: None (occurrence: None)
  Receive Date: 20100520
  Receipt Date: 20100513
  Transmission Date: 20101027
  Serious: Yes (Death, Hospitalization, Other)
  Sender: FDA-Public Use
  Company Number: JP-ELI_LILLY_AND_COMPANY-JP200912002233

PATIENT
  Sex: Male
  Weight: 61.8 kg

DRUGS (10)
  1. GEMCITABINE HCL [Suspect]
     Indication: PANCREATIC CARCINOMA NON-RESECTABLE
     Dosage: 1000 MG/M2, OTHER
     Route: 042
     Dates: start: 20090206, end: 20091029
  2. TS 1 (DRUG CODE 015935.01.001) [Suspect]
     Indication: PANCREATIC CARCINOMA NON-RESECTABLE
     Dosage: 50 MG, 2/D
     Route: 048
     Dates: start: 20090206, end: 20090618
  3. TS 1 (DRUG CODE 015935.01.001) [Suspect]
     Dosage: 60 MG, 2/D
     Route: 048
     Dates: start: 20090625, end: 20091105
  4. LOXONIN [Concomitant]
     Indication: ANALGESIC THERAPY
     Dosage: 60 MG, 2/D
     Route: 048
     Dates: start: 20090208, end: 20091206
  5. MAGMITT [Concomitant]
     Indication: CONSTIPATION
     Dosage: 330 MG, 3/D
     Route: 048
     Dates: start: 20091116, end: 20091206
  6. PARIET [Concomitant]
     Indication: GASTRODUODENAL ULCER
     Dosage: 10 MG, 2/D
     Route: 048
     Dates: start: 20091111, end: 20091206
  7. SLOW-K [Concomitant]
     Indication: MINERAL SUPPLEMENTATION
     Dosage: 600 MG, DAILY (1/D)
     Route: 048
     Dates: start: 20091127, end: 20091206
  8. ALBUMIN /01102501/ [Concomitant]
     Indication: BLOOD ALBUMIN DECREASED
     Dosage: 25 G, DAILY (1/D)
     Route: 042
     Dates: start: 20091113
  9. ALBUMIN /01102501/ [Concomitant]
     Dosage: 12.5 G, DAILY (1/D)
     Route: 042
     Dates: end: 20091129
  10. LASIX [Concomitant]
     Indication: ESSENTIAL HYPERTENSION
     Dosage: 20 MG, DAILY (1/D)
     Route: 042
     Dates: start: 20091113, end: 20091129

REACTIONS (2)
  - DISSEMINATED INTRAVASCULAR COAGULATION [None]
  - INTERSTITIAL LUNG DISEASE [None]
